FAERS Safety Report 9709215 (Version 9)
Quarter: 2014Q2

REPORT INFORMATION
  Report Type: Spontaneous
  Country: BE (occurrence: BE)
  Receive Date: 20131125
  Receipt Date: 20140612
  Transmission Date: 20141212
  Serious: Yes (Hospitalization)
  Sender: FDA-Public Use
  Company Number: BE-009507513-1307BEL010543

PATIENT
  Age: 37 Year
  Sex: Female

DRUGS (7)
  1. PEGINTRON [Suspect]
     Indication: HEPATITIS C
     Dosage: UNK, QW, 150 MCG DAILY
     Dates: start: 20130529, end: 20140522
  2. REBETOL [Suspect]
     Indication: HEPATITIS C
     Dosage: BID, TOTAL DALY DOSE OF 1400MG
     Route: 048
     Dates: start: 20130529, end: 20131022
  3. REBETOL [Suspect]
     Dosage: BID, TOTAL DALY DOSE OF 1200MG
     Route: 048
     Dates: start: 20131023, end: 20140522
  4. PERSANTINE [Concomitant]
     Dosage: UNK
     Dates: end: 201405
  5. ALPRAZOLAM [Concomitant]
     Dosage: UNK
  6. LORAZEPAM [Concomitant]
     Dosage: UNK
  7. SULPIRIDE [Concomitant]

REACTIONS (28)
  - Angina pectoris [Unknown]
  - Coronary artery stenosis [Unknown]
  - Dyspnoea [Unknown]
  - Dysphagia [Recovering/Resolving]
  - Gastric disorder [Unknown]
  - Sleep disorder [Unknown]
  - Middle insomnia [Unknown]
  - Bronchitis chronic [Not Recovered/Not Resolved]
  - Vomiting [Recovered/Resolved]
  - Influenza [Unknown]
  - Alopecia [Not Recovered/Not Resolved]
  - Fatigue [Not Recovered/Not Resolved]
  - Depressed mood [Recovering/Resolving]
  - Decreased appetite [Not Recovered/Not Resolved]
  - Weight decreased [Not Recovered/Not Resolved]
  - Insomnia [Unknown]
  - Nausea [Unknown]
  - Influenza like illness [Unknown]
  - Memory impairment [Unknown]
  - Depressive symptom [Not Recovered/Not Resolved]
  - Infection [Unknown]
  - Palpitations [Recovering/Resolving]
  - Stress [Recovering/Resolving]
  - Headache [Not Recovered/Not Resolved]
  - Bronchopneumonia [Unknown]
  - Increased appetite [Unknown]
  - Heart rate irregular [Unknown]
  - Weight increased [Unknown]
